FAERS Safety Report 10182446 (Version 1)
Quarter: 2014Q2

REPORT INFORMATION
  Report Type: Spontaneous
  Country: US (occurrence: None)
  Receive Date: 20140519
  Receipt Date: 20140519
  Transmission Date: 20141212
  Serious: Yes (Disabling)
  Sender: FDA-Public Use
  Company Number: None

PATIENT
  Age: 58 Year
  Sex: Male
  Weight: 95.26 kg

DRUGS (2)
  1. METHYLPREDNISONE [Suspect]
     Indication: BACK PAIN
     Dates: start: 20120911
  2. METHYLPREDNISONE [Suspect]
     Indication: STEROID THERAPY
     Dates: start: 20120911

REACTIONS (5)
  - Headache [None]
  - Musculoskeletal stiffness [None]
  - Pyrexia [None]
  - Cerebrospinal fluid leakage [None]
  - Procedural complication [None]
